FAERS Safety Report 15653508 (Version 1)
Quarter: 2018Q4

REPORT INFORMATION
  Report Type: Spontaneous
  Country: US (occurrence: US)
  Receive Date: 20181124
  Receipt Date: 20181124
  Transmission Date: 20190205
  Serious: Yes (Other)
  Sender: FDA-Public Use
  Company Number: US-TEVA-2018-US-977635

PATIENT
  Age: 78 Year
  Sex: Female

DRUGS (2)
  1. TRAZODONE HYDROCHLORIDE TABLETS [Suspect]
     Active Substance: TRAZODONE HYDROCHLORIDE
     Indication: DEPRESSION
     Dates: start: 2015
  2. TRAZODONE HYDROCHLORIDE TABLETS [Suspect]
     Active Substance: TRAZODONE HYDROCHLORIDE
     Indication: INSOMNIA

REACTIONS (4)
  - Dyspnoea [Unknown]
  - Dry mouth [Unknown]
  - Depression [Unknown]
  - Product use in unapproved indication [Unknown]

NARRATIVE: CASE EVENT DATE: 201811
